FAERS Safety Report 17082959 (Version 1)
Quarter: 2019Q4

REPORT INFORMATION
  Report Type: Spontaneous
  Country: ES (occurrence: ES)
  Receive Date: 20191127
  Receipt Date: 20191127
  Transmission Date: 20200122
  Serious: Yes (Other)
  Sender: FDA-Public Use
  Company Number: ES-AVERITAS PHARMA, INC.-2019-19357

PATIENT
  Age: 41 Year
  Sex: Female
  Weight: 82 kg

DRUGS (1)
  1. QUTENZA [Suspect]
     Active Substance: CAPSAICIN
     Indication: POST HERPETIC NEURALGIA
     Dosage: UNK
     Route: 003
     Dates: start: 20191105, end: 20191105

REACTIONS (3)
  - Costovertebral angle tenderness [Not Recovered/Not Resolved]
  - Pruritus [Not Recovered/Not Resolved]
  - Inflammation [Not Recovered/Not Resolved]

NARRATIVE: CASE EVENT DATE: 20191105
